FAERS Safety Report 8551561 (Version 4)
Quarter: 2012Q4

REPORT INFORMATION
  Report Type: Report from Study
  Country: JP (occurrence: JP)
  Receive Date: 20120508
  Receipt Date: 20121231
  Transmission Date: 20130627
  Serious: Yes (Other)
  Sender: FDA-Public Use
  Company Number: JP-VERTEX PHARMACEUTICAL INC.-AE-2012-006310

PATIENT
  Age: 71 Year
  Sex: Male

DRUGS (11)
  1. VX-950 (TELAPREVIR) [Suspect]
     Indication: CHRONIC HEPATITIS C
     Dosage: 2250 mg, qd
     Route: 048
     Dates: start: 20120215, end: 20120426
  2. PEGINTRON                          /01543001/ [Suspect]
     Indication: CHRONIC HEPATITIS C
     Dosage: 1.5 ?g/kg, qw
     Route: 058
     Dates: start: 20120215, end: 20120802
  3. REBETOL [Suspect]
     Indication: CHRONIC HEPATITIS C
     Dosage: 600 mg, qd
     Route: 048
     Dates: start: 20120215, end: 20120227
  4. REBETOL [Suspect]
     Dosage: 400 mg, qd
     Route: 048
     Dates: start: 20120228, end: 20120308
  5. REBETOL [Suspect]
     Dosage: 200 mg, qd
     Route: 048
     Dates: start: 20120309, end: 20120314
  6. REBETOL [Suspect]
     Dosage: 200 mg, qod
     Route: 048
     Dates: start: 20120315, end: 20120328
  7. REBETOL [Suspect]
     Dosage: 200 mg/ 3 days
     Route: 048
     Dates: start: 20120329, end: 20120411
  8. REBETOL [Suspect]
     Dosage: 200 mg, qod
     Route: 048
     Dates: start: 20120412, end: 20120802
  9. URSO                               /00465701/ [Concomitant]
     Dosage: 600 mg, qd
     Route: 048
     Dates: end: 20120215
  10. LOXONIN [Concomitant]
     Dosage: 60 mg, prn
     Route: 048
     Dates: end: 20120509
  11. AZULENE-GLUTAMINE FINE GRANULES [Concomitant]
     Dosage: 0.67 g, qd
     Route: 048
     Dates: end: 20120509

REACTIONS (2)
  - Drug eruption [Recovered/Resolved]
  - Anaemia [Recovered/Resolved]
